FAERS Safety Report 19172313 (Version 3)
Quarter: 2022Q2

REPORT INFORMATION
  Report Type: Report from Study
  Country: US (occurrence: None)
  Receive Date: 20210423
  Receipt Date: 20220513
  Transmission Date: 20220721
  Serious: Yes (Hospitalization, Other)
  Sender: FDA-Public Use
  Company Number: US-ROCHE-2810737

PATIENT
  Age: 71 Year
  Sex: Male
  Weight: 88.7 kg

DRUGS (5)
  1. ATEZOLIZUMAB [Suspect]
     Active Substance: ATEZOLIZUMAB
     Indication: Colon cancer stage III
     Dosage: MOST RECENT DOSE ADMINISTERED ON  01/DEC/2020 AT THE DOSE OF 840 MG
     Route: 042
     Dates: start: 20201118
  2. OXALIPLATIN [Suspect]
     Active Substance: OXALIPLATIN
     Indication: Colon cancer stage III
     Dosage: MOST RECENT DOSE ADMINISTERED ON 01/DEC/2020 AT THE DOSE OF 172.5MG
     Route: 042
     Dates: start: 20201118
  3. LEUCOVORIN CALCIUM [Suspect]
     Active Substance: LEUCOVORIN CALCIUM
     Indication: Colon cancer stage III
     Dosage: MOST RECENT DOSE ADMINISTERED ON: 01/DEC/2020 AT THE DOSE OF  810 MG
     Route: 042
     Dates: start: 20201118
  4. FLUOROURACIL [Suspect]
     Active Substance: FLUOROURACIL
     Indication: Colon cancer stage III
     Dosage: MOST RECENT DOST ADMINISTERED ON 01/DEC/2020 AT THE DOSE OF 5675 MG
     Route: 040
     Dates: start: 20201118
  5. AMOXICILLIN [Concomitant]
     Active Substance: AMOXICILLIN

REACTIONS (16)
  - Enterocolitis infectious [Recovered/Resolved]
  - Acute kidney injury [Recovered/Resolved]
  - Atrial fibrillation [Unknown]
  - Diarrhoea [Recovered/Resolved]
  - Sepsis [Recovered/Resolved]
  - Syncope [Recovered/Resolved]
  - Decreased appetite [Recovered/Resolved]
  - Duodenal ulcer [Recovered/Resolved]
  - Jejunal ulcer [Recovered/Resolved]
  - Shock haemorrhagic [Recovered/Resolved]
  - Sinus node dysfunction [Recovered/Resolved]
  - Neutropenic colitis [Recovered/Resolved]
  - Gastrointestinal haemorrhage [Recovered/Resolved]
  - Upper gastrointestinal haemorrhage [Recovered/Resolved]
  - Sinus node dysfunction [Recovered/Resolved]
  - Multiple organ dysfunction syndrome [Recovered/Resolved]

NARRATIVE: CASE EVENT DATE: 20201213
